FAERS Safety Report 21489461 (Version 1)
Quarter: 2022Q4

REPORT INFORMATION
  Report Type: Spontaneous
  Country: PL (occurrence: PL)
  Receive Date: 20221021
  Receipt Date: 20221021
  Transmission Date: 20230113
  Serious: Yes (Hospitalization, Other)
  Sender: FDA-Public Use
  Company Number: PL-BAYER-2022P005102

PATIENT
  Age: 67 Year
  Sex: Male

DRUGS (11)
  1. RIVAROXABAN [Suspect]
     Active Substance: RIVAROXABAN
     Indication: Atrial fibrillation
     Dosage: 20 MG, UNK
     Route: 048
  2. ASPIRIN [Suspect]
     Active Substance: ASPIRIN
     Indication: Product used for unknown indication
     Route: 065
  3. METOPROLOL [Concomitant]
     Active Substance: METOPROLOL
     Dosage: 50 MG
  4. PERINDOPRIL ERBUMINE [Concomitant]
     Active Substance: PERINDOPRIL ERBUMINE
     Dosage: 10 MG
  5. INDAPAMIDE [Concomitant]
     Active Substance: INDAPAMIDE
     Dosage: 2.5 MG
  6. AMLODIPINE [Concomitant]
     Active Substance: AMLODIPINE BESYLATE
     Dosage: 5 MG
  7. ROSUVASTATIN [Concomitant]
     Active Substance: ROSUVASTATIN
     Dosage: 10 MG
  8. PANTOPRAZOLE [Concomitant]
     Active Substance: PANTOPRAZOLE
     Dosage: 20 MG
  9. INSULIN NOS [Concomitant]
     Active Substance: INSULIN NOS
     Dosage: INSULIN ASPART 10-10-10 UNITS AND GLARGINE 40 UNITS
  10. EMPAGLIFLOZIN [Concomitant]
     Active Substance: EMPAGLIFLOZIN
  11. LIRAGLUTIDE [Concomitant]
     Active Substance: LIRAGLUTIDE

REACTIONS (14)
  - Vessel puncture site haematoma [Unknown]
  - Heart rate irregular [Unknown]
  - Crepitations [Unknown]
  - Diabetic foot [Unknown]
  - Ejection fraction decreased [Recovering/Resolving]
  - Oedema peripheral [Unknown]
  - Atrial fibrillation [Recovering/Resolving]
  - Coronary artery occlusion [Recovering/Resolving]
  - Bradycardia [Recovering/Resolving]
  - Vascular stenosis [Recovering/Resolving]
  - Pruritus [Unknown]
  - Rales [Unknown]
  - Varicose vein [Unknown]
  - Erythema [Unknown]
